FAERS Safety Report 8921081 (Version 1)
Quarter: 2012Q4

REPORT INFORMATION
  Report Type: Report from Study
  Country: US (occurrence: US)
  Receive Date: 20121121
  Receipt Date: 20121121
  Transmission Date: 20130627
  Serious: Yes (Hospitalization, Other)
  Sender: FDA-Public Use
  Company Number: US-ABBOTT-12P-163-1007931-00

PATIENT
  Age: 64 Year
  Sex: Female
  Weight: 104.42 kg

DRUGS (8)
  1. HUMIRA [Suspect]
     Indication: RHEUMATOID ARTHRITIS
  2. ABILIFY [Concomitant]
     Indication: DIABETES MELLITUS
  3. LYRICA [Concomitant]
     Indication: PRODUCT USED FOR UNKNOWN INDICATION
  4. METHOTREXATE [Concomitant]
     Indication: RHEUMATOID ARTHRITIS
  5. FOLIC ACID [Concomitant]
     Indication: PRODUCT USED FOR UNKNOWN INDICATION
  6. PREDNISONE [Concomitant]
     Indication: RHEUMATOID ARTHRITIS
  7. VITAMIN D3 [Concomitant]
     Indication: PRODUCT USED FOR UNKNOWN INDICATION
  8. VICTOZA [Concomitant]
     Indication: DIABETES MELLITUS

REACTIONS (6)
  - Urinary tract obstruction [Recovered/Resolved]
  - Urinary tract obstruction [Recovering/Resolving]
  - Slow speech [Not Recovered/Not Resolved]
  - Kidney infection [Recovered/Resolved]
  - Abdominal pain upper [Recovered/Resolved]
  - Dyspraxia [Recovered/Resolved]
